FAERS Safety Report 21628486 (Version 1)
Quarter: 2022Q4

REPORT INFORMATION
  Report Type: Spontaneous
  Country: AU (occurrence: None)
  Receive Date: 20221122
  Receipt Date: 20221122
  Transmission Date: 20230113
  Serious: Yes (Other)
  Sender: FDA-Public Use
  Company Number: AU-ROCHE-3221926

PATIENT
  Age: 78 Year
  Sex: Female

DRUGS (1)
  1. ESBRIET [Suspect]
     Active Substance: PIRFENIDONE
     Indication: Idiopathic pulmonary fibrosis
     Dosage: THREE TIMES A DAY
     Route: 048

REACTIONS (5)
  - Idiopathic pulmonary fibrosis [Unknown]
  - Malaise [Unknown]
  - Chest discomfort [Unknown]
  - Cough [Unknown]
  - Pulmonary pain [Unknown]
